FAERS Safety Report 6875808-3 (Version None)
Quarter: 2010Q3

REPORT INFORMATION
  Report Type: 
  Country: None (occurrence: None)
  Receive Date: 20100727
  Receipt Date: 20100720
  Transmission Date: 20110219
  Serious: Yes (Other)
  Sender: FDA-Public Use
  Company Number: US-ASTRAZENECA-2006UW27938

PATIENT
  Age: 49 Year
  Sex: Female
  Weight: 88 kg

DRUGS (17)
  1. SEROQUEL [Suspect]
     Indication: SLEEP APNOEA SYNDROME
     Dosage: 25-100 MG
     Route: 048
     Dates: start: 20020528, end: 20030926
  2. SEROQUEL [Suspect]
     Indication: DEPRESSION
     Dosage: 25-100 MG
     Route: 048
     Dates: start: 20020528, end: 20030926
  3. SEROQUEL [Suspect]
     Route: 048
     Dates: start: 20021011
  4. SEROQUEL [Suspect]
     Route: 048
     Dates: start: 20021011
  5. REDUX [Concomitant]
  6. GEODON [Concomitant]
  7. AMBIEN [Concomitant]
     Dosage: 5MG -20MG
     Dates: start: 19960129
  8. LAMICTAL [Concomitant]
     Dates: start: 20050110
  9. LIPITOR [Concomitant]
     Dates: start: 20020801
  10. LODINE [Concomitant]
     Dates: start: 19960826
  11. LOPID [Concomitant]
     Dates: start: 20010212
  12. METFORMIN HCL [Concomitant]
     Dosage: 5MG-500MG
     Dates: start: 20050711
  13. PROZAC [Concomitant]
     Dates: start: 19910606
  14. SKELAXIN [Concomitant]
     Dates: start: 20040224
  15. SYNTHROID [Concomitant]
     Dosage: 25UG - 100UG
     Dates: start: 20040224
  16. WELLBUTRIN SR [Concomitant]
     Dates: start: 19910606
  17. ZOLOFT [Concomitant]
     Dosage: 50MG-150MG
     Dates: start: 20020530

REACTIONS (12)
  - BACK DISORDER [None]
  - BLOOD CHOLESTEROL INCREASED [None]
  - BLOOD GLUCOSE INCREASED [None]
  - BLOOD TRIGLYCERIDES INCREASED [None]
  - DYSPNOEA [None]
  - HYPERGLYCAEMIA [None]
  - HYPERLIPIDAEMIA [None]
  - INTERVERTEBRAL DISC DISORDER [None]
  - NEOPLASM SKIN [None]
  - OBESITY [None]
  - TYPE 2 DIABETES MELLITUS [None]
  - WEIGHT INCREASED [None]
